FAERS Safety Report 9223197 (Version 1)
Quarter: 2013Q1

REPORT INFORMATION
  Report Type: Spontaneous
  Country: US (occurrence: None)
  Receive Date: 20120914
  Receipt Date: 20120914
  Transmission Date: 20140127
  Serious: Yes (Other)
  Sender: FDA-Public Use
  Company Number: JPI-P-016750

PATIENT
  Age: 71 Year
  Sex: Male
  Weight: 87.09 kg

DRUGS (5)
  1. XYREM [Suspect]
     Indication: CATAPLEXY
     Route: 048
     Dates: start: 20091103
  2. METOPROLOL TARTRATE [Concomitant]
  3. EZETIMIBE AND SIMVASTATIN [Concomitant]
  4. ALENDRONATE [Concomitant]
  5. DEXTROAMPHETAMINE [Concomitant]

REACTIONS (2)
  - Arthritis [None]
  - Arthralgia [None]
